FAERS Safety Report 10924545 (Version 4)
Quarter: 2015Q2

REPORT INFORMATION
  Report Type: Spontaneous
  Country: US (occurrence: US)
  Receive Date: 20150318
  Receipt Date: 20150524
  Transmission Date: 20150821
  Serious: No
  Sender: FDA-Public Use
  Company Number: US-JNJFOC-20141207960

PATIENT

DRUGS (3)
  1. CABAZITAXEL [Interacting]
     Active Substance: CABAZITAXEL
     Indication: PRODUCT USED FOR UNKNOWN INDICATION
     Route: 065
  2. RIFAMPICIN [Interacting]
     Active Substance: RIFAMPIN
     Indication: PRODUCT USED FOR UNKNOWN INDICATION
     Route: 065
  3. KETOCONAZOLE. [Suspect]
     Active Substance: KETOCONAZOLE
     Indication: PRODUCT USED FOR UNKNOWN INDICATION
     Route: 065

REACTIONS (1)
  - Drug interaction [Unknown]
